FAERS Safety Report 17981251 (Version 1)
Quarter: 2020Q3

REPORT INFORMATION
  Report Type: Spontaneous
  Country: US (occurrence: US)
  Receive Date: 20200705
  Receipt Date: 20200705
  Transmission Date: 20201103
  Serious: No
  Sender: FDA-Public Use
  Company Number: US-MIKART, LLC-2087030

PATIENT
  Sex: Female

DRUGS (7)
  1. IBUPROFEN. [Concomitant]
     Active Substance: IBUPROFEN
  2. BENADRYL [Concomitant]
     Active Substance: DIPHENHYDRAMINE HYDROCHLORIDE
  3. HYDROCODONE BITARTRATE AND ACETAMINOPHEN [Suspect]
     Active Substance: ACETAMINOPHEN\HYDROCODONE BITARTRATE
     Indication: PAIN
     Route: 048
  4. POTASSIUM [Concomitant]
     Active Substance: POTASSIUM
  5. TYLENOL [Concomitant]
     Active Substance: ACETAMINOPHEN
  6. INFLECTRA [Concomitant]
     Active Substance: INFLIXIMAB-DYYB
  7. LASIX [Concomitant]
     Active Substance: FUROSEMIDE

REACTIONS (1)
  - Drug ineffective [Unknown]
